FAERS Safety Report 18777048 (Version 1)
Quarter: 2021Q1

REPORT INFORMATION
  Report Type: Spontaneous
  Country: US (occurrence: US)
  Receive Date: 20210123
  Receipt Date: 20210123
  Transmission Date: 20210419
  Serious: No
  Sender: FDA-Public Use
  Company Number: US-009507513-2101USA003743

PATIENT
  Age: 72 Year
  Sex: Male

DRUGS (5)
  1. RITUXIMAB. [Suspect]
     Active Substance: RITUXIMAB
     Dosage: UNK
     Route: 042
  2. RITUXIMAB. [Suspect]
     Active Substance: RITUXIMAB
     Dosage: 375 MG/M2
     Route: 042
  3. RITUXIMAB. [Suspect]
     Active Substance: RITUXIMAB
     Dosage: UNK
     Route: 042
  4. RITUXIMAB. [Suspect]
     Active Substance: RITUXIMAB
     Dosage: UNK
     Route: 042
  5. COZAAR [Suspect]
     Active Substance: LOSARTAN POTASSIUM
     Indication: FIBRILLARY GLOMERULONEPHRITIS
     Dosage: 100 MILLIGRAM, QD

REACTIONS (1)
  - Product use in unapproved indication [Unknown]
